FAERS Safety Report 9210002 (Version 2)
Quarter: 2013Q2

REPORT INFORMATION
  Report Type: Spontaneous
  Country: US (occurrence: US)
  Receive Date: 20130404
  Receipt Date: 20130625
  Transmission Date: 20140414
  Serious: No
  Sender: FDA-Public Use
  Company Number: US-ASTELLAS-2013US002004

PATIENT
  Age: 77 Year
  Sex: Female
  Weight: 82 kg

DRUGS (10)
  1. VESICARE [Suspect]
     Indication: POLLAKIURIA
     Dosage: UNK
     Route: 048
  2. MYRBETRIQ [Suspect]
     Indication: URINARY INCONTINENCE
     Dosage: 25 MG, UID/QD
     Route: 048
     Dates: start: 20130301
  3. MYRBETRIQ [Suspect]
     Indication: MIXED INCONTINENCE
     Dosage: 25 MG, BID
     Route: 048
     Dates: start: 20130520, end: 20130520
  4. KLOR-CON [Concomitant]
     Indication: PRODUCT USED FOR UNKNOWN INDICATION
     Dosage: UNK
     Route: 065
  5. NORVASC [Concomitant]
     Indication: PRODUCT USED FOR UNKNOWN INDICATION
     Dosage: UNK
     Route: 065
  6. IMDUR [Concomitant]
     Indication: PRODUCT USED FOR UNKNOWN INDICATION
     Dosage: UNK
     Route: 065
  7. PRILOSEC                           /00661201/ [Concomitant]
     Indication: PRODUCT USED FOR UNKNOWN INDICATION
     Dosage: UNK
     Route: 065
  8. PAIN MEDICATION [Concomitant]
     Indication: PAIN
     Dosage: UNK
     Route: 065
  9. XANAX [Concomitant]
     Indication: PRODUCT USED FOR UNKNOWN INDICATION
     Dosage: UNK
     Route: 065
  10. ATARAX                             /00058401/ [Concomitant]
     Indication: PRODUCT USED FOR UNKNOWN INDICATION
     Dosage: UNK
     Route: 065

REACTIONS (9)
  - Drug ineffective [Unknown]
  - Off label use [Unknown]
  - Incorrect dose administered [Unknown]
  - Blister [Unknown]
  - Gingival swelling [Unknown]
  - Nocturia [Unknown]
  - Lip swelling [Unknown]
  - Swollen tongue [Unknown]
  - Dry mouth [Unknown]
